FAERS Safety Report 6757719-7 (Version None)
Quarter: 2010Q2

REPORT INFORMATION
  Report Type: 
  Country: None (occurrence: None)
  Receive Date: 20100524
  Receipt Date: 20100308
  Transmission Date: 20101027
  Serious: No
  Sender: FDA-Public Use
  Company Number: 008400

PATIENT
  Sex: Female
  Weight: 68 kg

DRUGS (5)
  1. CIMZIA [Suspect]
     Indication: RHEUMATOID ARTHRITIS
     Dosage: (400MG SUBCUTANEOUS)
     Route: 058
     Dates: start: 20090901
  2. METHOTREXATE [Concomitant]
  3. FOLIC ACID [Concomitant]
  4. DICLOFENAC [Concomitant]
  5. AMBIEN [Concomitant]

REACTIONS (4)
  - INCORRECT DOSE ADMINISTERED [None]
  - OVARIAN CYST [None]
  - POSTOPERATIVE ADHESION [None]
  - PRODUCT QUALITY ISSUE [None]
